FAERS Safety Report 5290892-9 (Version None)
Quarter: 2007Q2

REPORT INFORMATION
  Report Type: 
  Country: None (occurrence: None)
  Receive Date: 20070409
  Receipt Date: 20070328
  Transmission Date: 20071010
  Serious: Yes (Hospitalization, Other)
  Sender: FDA-Public Use
  Company Number: JP-PFIZER INC-2007020755

PATIENT
  Sex: Female

DRUGS (4)
  1. JZOLOFT [Suspect]
     Indication: DEPRESSIVE SYMPTOM
     Route: 048
     Dates: start: 20061031, end: 20070301
  2. JZOLOFT [Suspect]
     Indication: GENERALISED ANXIETY DISORDER
  3. DEPAS [Concomitant]
     Route: 048
     Dates: start: 20000415
  4. TECIPUL [Concomitant]
     Route: 048

REACTIONS (8)
  - AFFECT LABILITY [None]
  - ANXIETY DISORDER [None]
  - CONDITION AGGRAVATED [None]
  - DEPRESSION [None]
  - ILEUS [None]
  - INSOMNIA [None]
  - IRRITABILITY [None]
  - SENSATION OF HEAVINESS [None]
